FAERS Safety Report 4654922-7 (Version None)
Quarter: 2005Q2

REPORT INFORMATION
  Report Type: 
  Country: None (occurrence: None)
  Receive Date: 20050506
  Receipt Date: 20041007
  Transmission Date: 20051028
  Serious: No
  Sender: FDA-Public Use
  Company Number: US-GLAXOSMITHKLINE-A0528999A

PATIENT
  Sex: Male

DRUGS (2)
  1. AMOXIL [Suspect]
     Dosage: 1000MG TWICE PER DAY
     Route: 048
     Dates: start: 20041006
  2. BIAXIN [Concomitant]

REACTIONS (1)
  - DIARRHOEA [None]
